FAERS Safety Report 16041056 (Version 1)
Quarter: 2019Q1

REPORT INFORMATION
  Report Type: Spontaneous
  Country: US (occurrence: US)
  Receive Date: 20190306
  Receipt Date: 20190306
  Transmission Date: 20190418
  Serious: Yes (Other)
  Sender: FDA-Public Use
  Company Number: US-AKORN PHARMACEUTICALS-2018AKN01728

PATIENT
  Age: 51 Year
  Sex: Male
  Weight: 126.98 kg

DRUGS (6)
  1. ETOH [Suspect]
     Active Substance: ALCOHOL
  2. MYORISAN [Suspect]
     Active Substance: ISOTRETINOIN
     Indication: ACNE
     Dosage: 40 MG, 1X/DAY, EVERY PM
     Route: 048
     Dates: start: 20180813, end: 20180929
  3. BYSTOLIC [Concomitant]
     Active Substance: NEBIVOLOL HYDROCHLORIDE
  4. MYORISAN [Suspect]
     Active Substance: ISOTRETINOIN
     Indication: ACNE
     Dosage: 30 MG, 1X/DAY, EVERY AM
     Route: 048
     Dates: start: 20180821, end: 20180929
  5. SINGULAIR [Concomitant]
     Active Substance: MONTELUKAST SODIUM
  6. EDARBI [Concomitant]
     Active Substance: AZILSARTAN KAMEDOXOMIL

REACTIONS (1)
  - Blood triglycerides increased [Recovering/Resolving]

NARRATIVE: CASE EVENT DATE: 20181001
